FAERS Safety Report 8720553 (Version 2)
Quarter: 2012Q4

REPORT INFORMATION
  Report Type: 
  Country: JP (occurrence: JP)
  Receive Date: 20120813
  Receipt Date: 20120829
  Transmission Date: 20130627
  Serious: Yes (Hospitalization)
  Sender: FDA-Public Use
  Company Number: JP-ROCHE-1097913

PATIENT
  Age: 60 Year
  Sex: Male

DRUGS (2)
  1. XELODA [Suspect]
     Indication: LARGE INTESTINE CARCINOMA
     Dosage: Dosage is uncertain.
     Route: 048
  2. ELPLAT [Concomitant]
     Indication: LARGE INTESTINE CARCINOMA
     Dosage: Dosage is uncertain.
     Route: 041

REACTIONS (5)
  - Jaundice [Recovered/Resolved]
  - Hyperbilirubinaemia [Recovered/Resolved]
  - Aspartate aminotransferase increased [Recovered/Resolved]
  - Alanine aminotransferase increased [Recovered/Resolved]
  - Blood lactate dehydrogenase increased [Recovered/Resolved]
